FAERS Safety Report 4609320-9 (Version None)
Quarter: 2005Q2

REPORT INFORMATION
  Report Type: 
  Country: None (occurrence: None)
  Receive Date: 20050301
  Receipt Date: 20041028
  Transmission Date: 20051028
  Serious: No
  Sender: FDA-Public Use
  Company Number: WAES 0410USA00575

PATIENT
  Age: 53 Year
  Sex: Female
  Weight: 109.7705 kg

DRUGS (9)
  1. ZETIA [Suspect]
     Indication: BLOOD CHOLESTEROL INCREASED
     Dosage: 10MG/3XW/PO
     Route: 048
     Dates: start: 20040801, end: 20040101
  2. ZETIA [Suspect]
     Indication: HYPERLIPIDAEMIA
     Dosage: 10MG/3XW/PO
     Route: 048
     Dates: start: 20040801, end: 20040101
  3. ZETIA [Suspect]
     Indication: BLOOD CHOLESTEROL INCREASED
     Dosage: 10MG/3XW/PO
     Route: 048
     Dates: start: 20040701, end: 20040801
  4. ZETIA [Suspect]
     Indication: HYPERLIPIDAEMIA
     Dosage: 10MG/3XW/PO
     Route: 048
     Dates: start: 20040701, end: 20040801
  5. ZETIA [Suspect]
     Indication: BLOOD CHOLESTEROL INCREASED
     Dosage: 10MG/3XW/PO
     Route: 048
     Dates: start: 20040101
  6. ZETIA [Suspect]
     Indication: HYPERLIPIDAEMIA
     Dosage: 10MG/3XW/PO
     Route: 048
     Dates: start: 20040101
  7. AVANDIA [Concomitant]
  8. ZESTORETIC [Concomitant]
  9. GLYBURIDE [Concomitant]

REACTIONS (1)
  - MUSCLE SPASMS [None]
